FAERS Safety Report 7994206-2 (Version None)
Quarter: 2011Q4

REPORT INFORMATION
  Report Type: 
  Country: None (occurrence: None)
  Receive Date: 20111220
  Receipt Date: 20110510
  Transmission Date: 20120403
  Serious: No
  Sender: FDA-Public Use
  Company Number: US-GLAXOSMITHKLINE-A0927555A

PATIENT
  Age: 81 Year
  Sex: Female

DRUGS (6)
  1. ENALAPRIL MALEATE [Concomitant]
  2. COUMADIN [Concomitant]
  3. LIPITOR [Concomitant]
  4. RYTHMOL [Suspect]
     Indication: ARRHYTHMIA
     Dosage: 150MG THREE TIMES PER DAY
     Route: 048
     Dates: start: 20080501
  5. ATENOLOL [Concomitant]
  6. OMEPRAZOLE [Concomitant]

REACTIONS (1)
  - NAUSEA [None]
